FAERS Safety Report 15939365 (Version 1)
Quarter: 2019Q1

REPORT INFORMATION
  Report Type: Spontaneous
  Country: US (occurrence: US)
  Receive Date: 20190208
  Receipt Date: 20190208
  Transmission Date: 20190417
  Serious: Yes (Other)
  Sender: FDA-Public Use
  Company Number: US-AMGEN-USASP2019020169

PATIENT

DRUGS (2)
  1. TALIMOGENE LAHERPAREPVEC [Suspect]
     Active Substance: TALIMOGENE LAHERPAREPVEC
     Dosage: UNK, Q2WK (THREE WEEKS AFTER THE INITIAL ADMINISTRATION AT 10^8 PFU/ML)
     Route: 026
     Dates: start: 201510
  2. TALIMOGENE LAHERPAREPVEC [Suspect]
     Active Substance: TALIMOGENE LAHERPAREPVEC
     Indication: MALIGNANT MELANOMA
     Dosage: 10^6 PFU/ML
     Route: 026
     Dates: start: 20151001, end: 20151001

REACTIONS (1)
  - Osteomyelitis [Unknown]
